FAERS Safety Report 13381819 (Version 1)
Quarter: 2017Q1

REPORT INFORMATION
  Report Type: Spontaneous
  Country: US (occurrence: US)
  Receive Date: 20170329
  Receipt Date: 20170329
  Transmission Date: 20170429
  Serious: Yes (Life-Threatening, Hospitalization, Disabling, Other)
  Sender: FDA-Public Use
  Company Number: None

PATIENT
  Sex: Female

DRUGS (3)
  1. THYROGEN [Suspect]
     Active Substance: THYROTROPIN ALFA
     Indication: THYROID DISORDER
     Dates: start: 20150415, end: 20150415
  2. SYNTHROID [Concomitant]
     Active Substance: LEVOTHYROXINE SODIUM
  3. THYROGEN [Suspect]
     Active Substance: THYROTROPIN ALFA
     Indication: THYROID CANCER
     Dates: start: 20150415, end: 20150415

REACTIONS (5)
  - Abasia [None]
  - Vomiting projectile [None]
  - Balance disorder [None]
  - Cerebrovascular accident [None]
  - Coordination abnormal [None]

NARRATIVE: CASE EVENT DATE: 20160829
